FAERS Safety Report 16370014 (Version 1)
Quarter: 2019Q2

REPORT INFORMATION
  Report Type: Spontaneous
  Country: US (occurrence: US)
  Receive Date: 20190530
  Receipt Date: 20190530
  Transmission Date: 20190711
  Serious: No
  Sender: FDA-Public Use
  Company Number: US-VIVIMED-2018SP007269

PATIENT
  Age: 52 Year
  Sex: Male

DRUGS (10)
  1. ZOLPIDEM [Suspect]
     Active Substance: ZOLPIDEM\ZOLPIDEM TARTRATE
     Dosage: 10 MG
     Route: 065
  2. TRIHEXYPHENIDYL [Suspect]
     Active Substance: TRIHEXYPHENIDYL
     Indication: OROMANDIBULAR DYSTONIA
     Dosage: UNK
     Route: 065
  3. TETRABENAZINE. [Suspect]
     Active Substance: TETRABENAZINE
     Indication: OROMANDIBULAR DYSTONIA
     Dosage: UNK
     Route: 065
  4. METAXALONE. [Suspect]
     Active Substance: METAXALONE
     Indication: OROMANDIBULAR DYSTONIA
     Dosage: UNK
     Route: 065
  5. ALPRAZOLAM. [Suspect]
     Active Substance: ALPRAZOLAM
     Indication: OROMANDIBULAR DYSTONIA
     Dosage: UNK
     Route: 065
  6. BACLOFEN. [Suspect]
     Active Substance: BACLOFEN
     Indication: OROMANDIBULAR DYSTONIA
     Dosage: UNK
     Route: 065
  7. ZOLPIDEM [Suspect]
     Active Substance: ZOLPIDEM\ZOLPIDEM TARTRATE
     Indication: INSOMNIA
     Dosage: UNK
     Route: 065
  8. DIAZEPAM. [Suspect]
     Active Substance: DIAZEPAM
     Indication: OROMANDIBULAR DYSTONIA
     Dosage: UNK
     Route: 065
  9. LEVODOPA [Suspect]
     Active Substance: LEVODOPA
     Indication: OROMANDIBULAR DYSTONIA
     Dosage: UNK
     Route: 065
  10. BOTULINUM TOXIN TYPE A [Suspect]
     Active Substance: BOTULINUM TOXIN TYPE A
     Indication: OROMANDIBULAR DYSTONIA
     Dosage: UNK
     Route: 065

REACTIONS (2)
  - Therapeutic response unexpected [Unknown]
  - Drug ineffective [Unknown]
